FAERS Safety Report 10270634 (Version 2)
Quarter: 2014Q3

REPORT INFORMATION
  Report Type: Report from Study
  Country: US (occurrence: US)
  Receive Date: 20140701
  Receipt Date: 20140702
  Transmission Date: 20150326
  Serious: Yes (Death, Hospitalization)
  Sender: FDA-Public Use
  Company Number: US-SA-2014SA082635

PATIENT
  Age: 57 Year
  Sex: Female
  Weight: 76.5 kg

DRUGS (18)
  1. CLOFARABINE [Suspect]
     Active Substance: CLOFARABINE
     Indication: BONE MARROW CONDITIONING REGIMEN
     Route: 042
     Dates: start: 20140611, end: 20140615
  2. MELPHALAN [Suspect]
     Active Substance: MELPHALAN
     Indication: BONE MARROW CONDITIONING REGIMEN
     Route: 042
     Dates: start: 20140616
  3. ACTIGALL [Concomitant]
     Active Substance: URSODIOL
  4. BUMEX [Concomitant]
     Active Substance: BUMETANIDE
  5. ATROVENT [Concomitant]
     Active Substance: IPRATROPIUM BROMIDE
  6. MICAFUNGIN [Concomitant]
     Active Substance: MICAFUNGIN
     Indication: PROPHYLAXIS
  7. PROTONIX [Concomitant]
     Active Substance: PANTOPRAZOLE SODIUM
  8. DOPAMINE [Concomitant]
     Active Substance: DOPAMINE\DOPAMINE HYDROCHLORIDE
     Dates: end: 20140622
  9. ZOFRAN [Concomitant]
     Active Substance: ONDANSETRON HYDROCHLORIDE
  10. ACYCLOVIR. [Concomitant]
     Active Substance: ACYCLOVIR
     Indication: PROPHYLAXIS
  11. SILVADENE [Concomitant]
     Active Substance: SILVER SULFADIAZINE
  12. SIROLIMUS. [Concomitant]
     Active Substance: SIROLIMUS
  13. PROPOFOL. [Concomitant]
     Active Substance: PROPOFOL
  14. XOPENEX [Concomitant]
     Active Substance: LEVALBUTEROL HYDROCHLORIDE
  15. LEVAQUIN [Concomitant]
     Active Substance: LEVOFLOXACIN
  16. MAXIPIME [Concomitant]
     Active Substance: CEFEPIME HYDROCHLORIDE
  17. DILAUDID [Concomitant]
     Active Substance: HYDROMORPHONE HYDROCHLORIDE
  18. ZYVOX [Concomitant]
     Active Substance: LINEZOLID

REACTIONS (3)
  - Renal failure acute [Unknown]
  - Septic shock [Fatal]
  - Respiratory failure [Unknown]

NARRATIVE: CASE EVENT DATE: 20140618
